FAERS Safety Report 4862761-7 (Version None)
Quarter: 2005Q4

REPORT INFORMATION
  Report Type: 
  Country: None (occurrence: None)
  Receive Date: 20051221
  Receipt Date: 20051209
  Transmission Date: 20060501
  Serious: Yes (Other)
  Sender: FDA-Public Use
  Company Number: CA-BRISTOL-MYERS SQUIBB COMPANY-13219860

PATIENT
  Age: 69 Year
  Sex: Female

DRUGS (13)
  1. TEQUIN [Suspect]
     Route: 048
  2. ALTACE [Concomitant]
  3. ASAPHEN [Concomitant]
  4. CELEXA [Concomitant]
  5. GLUCOPHAGE [Concomitant]
  6. LIPITOR [Concomitant]
  7. LOPRESSOR [Concomitant]
  8. NEXIUM [Concomitant]
  9. NOVOLIN N [Concomitant]
  10. NOVOLIN [Concomitant]
  11. PLAQUENIL [Concomitant]
  12. RISTORIL [Concomitant]
  13. XANAX [Concomitant]

REACTIONS (3)
  - HEADACHE [None]
  - HYPERHIDROSIS [None]
  - HYPOGLYCAEMIA [None]
